FAERS Safety Report 18801074 (Version 3)
Quarter: 2022Q1

REPORT INFORMATION
  Report Type: Spontaneous
  Country: US (occurrence: US)
  Receive Date: 20210128
  Receipt Date: 20220107
  Transmission Date: 20220423
  Serious: Yes (Life-Threatening, Hospitalization, Congenital Anomaly, Other)
  Sender: FDA-Public Use
  Company Number: US-GRANULES-US-2021GRALIT00052

PATIENT
  Age: 31 Week
  Sex: Female
  Weight: 1.19 kg

DRUGS (5)
  1. IBUPROFEN [Suspect]
     Active Substance: IBUPROFEN
     Indication: Product used for unknown indication
     Route: 064
  2. ACETAMINOPHEN [Suspect]
     Active Substance: ACETAMINOPHEN
     Indication: Product used for unknown indication
     Route: 064
  3. CITALOPRAM [Suspect]
     Active Substance: CITALOPRAM HYDROBROMIDE
     Indication: Foetal exposure during pregnancy
     Route: 064
  4. ASPIRIN [Suspect]
     Active Substance: ASPIRIN
     Indication: Foetal exposure during pregnancy
     Route: 064
  5. BETAMETHASONE [Suspect]
     Active Substance: BETAMETHASONE
     Indication: Foetal exposure during pregnancy
     Route: 064

REACTIONS (19)
  - Ductus arteriosus premature closure [Recovered/Resolved]
  - Pulmonary hypertension [Recovered/Resolved]
  - Foetal growth restriction [Recovered/Resolved]
  - Neonatal hypoxia [Recovered/Resolved]
  - Neonatal sinus tachycardia [Recovered/Resolved]
  - Cardiomegaly [Recovered/Resolved]
  - Cardiac hypertrophy [Recovered/Resolved]
  - Diastolic dysfunction [Recovered/Resolved]
  - Systolic dysfunction [Recovered/Resolved]
  - Atrial septal defect [Recovered/Resolved]
  - Tricuspid valve incompetence [Recovered/Resolved]
  - Foetal heart rate disorder [Recovered/Resolved]
  - Premature baby [Unknown]
  - Neonatal respiratory failure [Recovered/Resolved]
  - Ventricular septal defect [Recovered/Resolved]
  - Foetal vascular malperfusion [Recovered/Resolved]
  - Umbilical artery vascular resistance increased [Recovered/Resolved]
  - Heart disease congenital [Recovering/Resolving]
  - Foetal exposure during pregnancy [Unknown]
